FAERS Safety Report 5191865-7 (Version None)
Quarter: 2006Q4

REPORT INFORMATION
  Report Type: 
  Country: None (occurrence: None)
  Receive Date: 20061220
  Receipt Date: 20061205
  Transmission Date: 20070319
  Serious: Yes (Other)
  Sender: FDA-Public Use
  Company Number: 2006US-04809

PATIENT
  Age: 23 Year
  Sex: Female

DRUGS (1)
  1. ISOTRETINOIN [Suspect]
     Dosage: 40 MG

REACTIONS (1)
  - NASAL SEPTAL OPERATION [None]
